FAERS Safety Report 5711183-5 (Version None)
Quarter: 2008Q2

REPORT INFORMATION
  Report Type: 
  Country: None (occurrence: None)
  Receive Date: 20080421
  Receipt Date: 20080328
  Transmission Date: 20081010
  Serious: Yes (Hospitalization)
  Sender: FDA-Public Use
  Company Number: US-JNJFOC-20080404945

PATIENT
  Sex: Female
  Weight: 100 kg

DRUGS (2)
  1. EXTRA STRENGTH TYLENOL [Suspect]
     Indication: SUICIDE ATTEMPT
     Dosage: 8-10 DOSES ONCE TOTAL
  2. COUMADIN [Concomitant]
     Indication: PULMONARY EMBOLISM

REACTIONS (1)
  - INTENTIONAL OVERDOSE [None]
